FAERS Safety Report 18629428 (Version 1)
Quarter: 2020Q4

REPORT INFORMATION
  Report Type: Spontaneous
  Country: US (occurrence: US)
  Receive Date: 20201217
  Receipt Date: 20201217
  Transmission Date: 20210114
  Serious: Yes (Hospitalization)
  Sender: FDA-Public Use
  Company Number: US-ROCHE-2734520

PATIENT
  Sex: Female

DRUGS (18)
  1. FAMOTIDINE. [Concomitant]
     Active Substance: FAMOTIDINE
  2. ROPINIROLE. [Concomitant]
     Active Substance: ROPINIROLE
  3. SERTRALINE [Concomitant]
     Active Substance: SERTRALINE HYDROCHLORIDE
  4. BREO ELLIPTA [Concomitant]
     Active Substance: FLUTICASONE FUROATE\VILANTEROL TRIFENATATE
  5. DICLOFENAC [Concomitant]
     Active Substance: DICLOFENAC
  6. LEVOTHYROXINE. [Concomitant]
     Active Substance: LEVOTHYROXINE
  7. LORATADINE. [Concomitant]
     Active Substance: LORATADINE
  8. LORAZEPAM. [Concomitant]
     Active Substance: LORAZEPAM
  9. ESBRIET [Suspect]
     Active Substance: PIRFENIDONE
     Indication: IDIOPATHIC PULMONARY FIBROSIS
     Route: 048
     Dates: start: 20180830
  10. DOXYCYCLINE. [Concomitant]
     Active Substance: DOXYCYCLINE
  11. LOSARTAN POTASSIUM. [Concomitant]
     Active Substance: LOSARTAN POTASSIUM
  12. CETIRIZINE [Concomitant]
     Active Substance: CETIRIZINE HYDROCHLORIDE
  13. AMANTADINE. [Concomitant]
     Active Substance: AMANTADINE HYDROCHLORIDE
  14. GABAPENTIN. [Concomitant]
     Active Substance: GABAPENTIN
  15. ALPRAZOLAM. [Concomitant]
     Active Substance: ALPRAZOLAM
  16. ATORVASTATIN [Concomitant]
     Active Substance: ATORVASTATIN
  17. FLUOXETINE [Concomitant]
     Active Substance: FLUOXETINE HYDROCHLORIDE
  18. PREDNISONE. [Concomitant]
     Active Substance: PREDNISONE

REACTIONS (1)
  - Dyspnoea [Unknown]
